FAERS Safety Report 13592061 (Version 5)
Quarter: 2017Q3

REPORT INFORMATION
  Report Type: Report from Study
  Country: TW (occurrence: TW)
  Receive Date: 20170530
  Receipt Date: 20170922
  Transmission Date: 20171127
  Serious: Yes (Hospitalization)
  Sender: FDA-Public Use
  Company Number: TW-PFIZER INC-2017216167

PATIENT
  Age: 67 Year
  Sex: Female
  Weight: 55 kg

DRUGS (18)
  1. FLUOROURACIL. [Suspect]
     Active Substance: FLUOROURACIL
     Dosage: 3874 MG, ONCE EVERY 2 WEEKS
     Route: 042
     Dates: start: 20170519
  2. OXALIPLATIN. [Suspect]
     Active Substance: OXALIPLATIN
     Dosage: 126.65 MG, UNK
     Route: 042
  3. FLUOROURACIL. [Suspect]
     Active Substance: FLUOROURACIL
     Dosage: 3822 MG, ONCE EVERY 2 WEEKS
     Route: 042
     Dates: end: 20170217
  4. PALONOSETRON [Concomitant]
     Active Substance: PALONOSETRON
     Indication: PREMEDICATION
     Dosage: 0.25 MG, UNK
     Route: 042
     Dates: start: 20170505, end: 20170505
  5. OXALIPLATIN. [Suspect]
     Active Substance: OXALIPLATIN
     Dosage: 124 MG, UNK
     Route: 042
  6. OXALIPLATIN. [Suspect]
     Active Substance: OXALIPLATIN
     Dosage: 124 MG, UNK
     Route: 042
     Dates: end: 20170217
  7. OXALIPLATIN. [Suspect]
     Active Substance: OXALIPLATIN
     Dosage: 125.8 MG, UNK
     Route: 042
     Dates: end: 20170505
  8. FLUOROURACIL. [Suspect]
     Active Substance: FLUOROURACIL
     Dosage: 3874 MG, ONCE EVERY 2 WEEKS
     Route: 042
  9. FLUOROURACIL. [Suspect]
     Active Substance: FLUOROURACIL
     Dosage: 3848 MG, ONCE EVERY 2 WEEKS
     Route: 042
     Dates: end: 20170421
  10. RINDERON /00008501/ [Concomitant]
     Active Substance: BETAMETHASONE
     Indication: PREMEDICATION
     Dosage: 4 MG, UNK
     Route: 042
     Dates: start: 20170505, end: 20170505
  11. OXALIPLATIN. [Suspect]
     Active Substance: OXALIPLATIN
     Indication: ADENOCARCINOMA GASTRIC
     Dosage: 124 MG, UNK
     Route: 042
     Dates: start: 20161209
  12. OXALIPLATIN. [Suspect]
     Active Substance: OXALIPLATIN
     Dosage: 125.8 MG, UNK
     Route: 042
  13. FLUOROURACIL. [Suspect]
     Active Substance: FLUOROURACIL
     Dosage: 3848 MG, ONCE EVERY 2 WEEKS
     Route: 042
     Dates: start: 20170310
  14. LEUCOVORIN /00566701/ [Concomitant]
     Active Substance: LEUCOVORIN
     Indication: ADENOCARCINOMA GASTRIC
     Dosage: UNK UNK, ONCE EVERY 2 WEEKS
     Route: 042
  15. OXALIPLATIN. [Suspect]
     Active Substance: OXALIPLATIN
     Dosage: 125.8 MG, UNK
     Route: 042
     Dates: start: 20170310
  16. OXALIPLATIN. [Suspect]
     Active Substance: OXALIPLATIN
     Dosage: 126.65 MG, UNK
     Route: 042
     Dates: start: 20170519
  17. OXALIPLATIN. [Suspect]
     Active Substance: OXALIPLATIN
     Dosage: 126.65 MG, UNK
     Route: 042
  18. FLUOROURACIL. [Suspect]
     Active Substance: FLUOROURACIL
     Indication: ADENOCARCINOMA GASTRIC
     Dosage: 3822 MG, ONCE EVERY 2 WEEKS
     Route: 042
     Dates: start: 20161209

REACTIONS (1)
  - Infusion related reaction [Recovered/Resolved]

NARRATIVE: CASE EVENT DATE: 20170505
